FAERS Safety Report 16114880 (Version 1)
Quarter: 2019Q1

REPORT INFORMATION
  Report Type: Spontaneous
  Country: CN (occurrence: CN)
  Receive Date: 20190325
  Receipt Date: 20190325
  Transmission Date: 20190418
  Serious: Yes (Disabling)
  Sender: FDA-Public Use
  Company Number: CN-PFIZER INC-2019120359

PATIENT
  Age: 45 Year
  Sex: Male
  Weight: 68 kg

DRUGS (6)
  1. LIPITOR [Suspect]
     Active Substance: ATORVASTATIN CALCIUM
     Indication: LIPIDS INCREASED
  2. KE LIN AO [CINEPAZIDE MALEATE] [Suspect]
     Active Substance: CINEPAZIDE MALEATE
     Indication: CEREBRAL INFARCTION
     Dosage: 320 MG, 1X/DAY
     Route: 041
     Dates: start: 20190222, end: 20190314
  3. PIRACETAM/SODIUM CHLORIDE [Suspect]
     Active Substance: PIRACETAM
     Indication: CEREBRAL INFARCTION
     Dosage: 100 ML, 1X/DAY
     Route: 041
     Dates: start: 20190222, end: 20190310
  4. ASPIRIN (E.C.) [Concomitant]
     Active Substance: ASPIRIN
     Indication: ANTIPLATELET THERAPY
     Dosage: 0.1 G, 1X/DAY
     Route: 048
     Dates: start: 20190222, end: 20190314
  5. CLOPIDOGREL [CLOPIDOGREL BISULFATE] [Suspect]
     Active Substance: CLOPIDOGREL BISULFATE
     Indication: ANTIPLATELET THERAPY
     Dosage: 75 MG, 1X/DAY
     Route: 048
     Dates: start: 20190222, end: 20190301
  6. LIPITOR [Suspect]
     Active Substance: ATORVASTATIN CALCIUM
     Indication: CEREBRAL INFARCTION
     Dosage: 20 MG, 1X/DAY
     Route: 048
     Dates: start: 20190222, end: 20190308

REACTIONS (2)
  - Gamma-glutamyltransferase increased [Recovered/Resolved]
  - Transaminases increased [Recovering/Resolving]

NARRATIVE: CASE EVENT DATE: 20190308
